FAERS Safety Report 11144233 (Version 2)
Quarter: 2016Q2

REPORT INFORMATION
  Report Type: Spontaneous
  Country: US (occurrence: US)
  Receive Date: 20150528
  Receipt Date: 20160516
  Transmission Date: 20160815
  Serious: No
  Sender: FDA-Public Use
  Company Number: US-MALLINCKRODT-T201501885

PATIENT
  Sex: Female

DRUGS (1)
  1. H.P. ACTHAR [Suspect]
     Active Substance: CORTICOTROPIN
     Indication: FOCAL SEGMENTAL GLOMERULOSCLEROSIS
     Dosage: 80 U, BIWEEKLY
     Route: 065
     Dates: start: 20141215

REACTIONS (5)
  - Drug effect decreased [Unknown]
  - Mood swings [Unknown]
  - Malaise [Unknown]
  - Fatigue [Unknown]
  - Nausea [Unknown]
